FAERS Safety Report 14835359 (Version 3)
Quarter: 2018Q3

REPORT INFORMATION
  Report Type: Spontaneous
  Country: CH (occurrence: CH)
  Receive Date: 20180502
  Receipt Date: 20180704
  Transmission Date: 20181010
  Serious: Yes (Hospitalization, Other)
  Sender: FDA-Public Use
  Company Number: CH-BRISTOL-MYERS SQUIBB COMPANY-BMS-2018-038215

PATIENT
  Age: 58 Year
  Sex: Male
  Weight: 78 kg

DRUGS (11)
  1. PULMICORT TURBUHALER [Concomitant]
     Active Substance: BUDESONIDE
     Indication: BRONCHIOLITIS
     Dosage: 1 DF, BID
     Route: 050
     Dates: start: 201801
  2. ZYPREXA [Concomitant]
     Active Substance: OLANZAPINE
     Indication: ANXIETY DISORDER
     Dosage: 1 DF, UNK
     Route: 048
  3. PREDNISONE. [Concomitant]
     Active Substance: PREDNISONE
     Indication: ADRENAL INSUFFICIENCY
     Route: 048
     Dates: start: 201610
  4. DOSPIR [Concomitant]
     Active Substance: ALBUTEROL SULFATE\IPRATROPIUM BROMIDE
     Indication: BRONCHIOLITIS
     Dosage: 2.5 ML, QID
     Route: 050
     Dates: start: 201801
  5. AZITHROMYCIN ANHYDROUS. [Concomitant]
     Active Substance: AZITHROMYCIN ANHYDROUS
     Indication: IMMUNOMODULATORY THERAPY
     Dosage: 250 MG, 3 TIMES/WK
     Route: 048
     Dates: start: 201803
  6. MORPHINE [Concomitant]
     Active Substance: MORPHINE
     Indication: DYSPNOEA
     Dosage: 1 MG, Q4H
     Route: 048
     Dates: start: 201802
  7. SURMONTIL [Concomitant]
     Active Substance: TRIMIPRAMINE MALEATE
     Indication: ANXIETY DISORDER
     Dosage: 200 MG, QD
     Route: 048
  8. IPRATROPIUM BROMIDE. [Concomitant]
     Active Substance: IPRATROPIUM BROMIDE
     Indication: BRONCHIOLITIS
     Dosage: UNK
     Route: 065
     Dates: start: 201801
  9. OPDIVO [Suspect]
     Active Substance: NIVOLUMAB
     Indication: NON-SMALL CELL LUNG CANCER STAGE III
     Dosage: 3 MG/KG, UNK
     Route: 042
     Dates: start: 20161228, end: 201801
  10. MAGNESIUM [Concomitant]
     Active Substance: MAGNESIUM
     Indication: PRODUCT USED FOR UNKNOWN INDICATION
     Route: 048
  11. CALCIMAGON D3 [Concomitant]
     Active Substance: CALCIUM\CHOLECALCIFEROL
     Indication: OSTEOPOROSIS
     Dosage: 1 DF, QD
     Route: 048

REACTIONS (5)
  - Respiratory failure [Recovering/Resolving]
  - Bronchiolitis [Not Recovered/Not Resolved]
  - Bronchitis [Not Recovered/Not Resolved]
  - Toxicity to various agents [Unknown]
  - Obstructive airways disorder [Recovering/Resolving]

NARRATIVE: CASE EVENT DATE: 2017
